FAERS Safety Report 23410099 (Version 1)
Quarter: 2024Q1

REPORT INFORMATION
  Report Type: Other
  Country: DK (occurrence: DK)
  Receive Date: 20240117
  Receipt Date: 20240117
  Transmission Date: 20240410
  Serious: Yes (Life-Threatening)
  Sender: FDA-Public Use
  Company Number: None

PATIENT
  Age: 71 Year
  Sex: Male
  Weight: 76 kg

DRUGS (3)
  1. OMNIPAQUE [Suspect]
     Active Substance: IOHEXOL
     Indication: Computerised tomogram thorax
     Dosage: APPROXIMATELY 100-150 ML, TOTAL
     Route: 042
     Dates: start: 20231219, end: 20231219
  2. OMNIPAQUE [Suspect]
     Active Substance: IOHEXOL
     Indication: Computerised tomogram abdomen
  3. OMNIPAQUE [Suspect]
     Active Substance: IOHEXOL
     Indication: Scan with contrast

REACTIONS (7)
  - Dysphonia [Unknown]
  - Anaphylactic reaction [Unknown]
  - Dizziness [Unknown]
  - Feeling hot [Unknown]
  - Hyperhidrosis [Unknown]
  - Palpitations [Unknown]
  - Aphasia [Unknown]

NARRATIVE: CASE EVENT DATE: 20231219
